FAERS Safety Report 14349881 (Version 8)
Quarter: 2018Q2

REPORT INFORMATION
  Report Type: Spontaneous
  Country: BE (occurrence: BE)
  Receive Date: 20180104
  Receipt Date: 20180515
  Transmission Date: 20180711
  Serious: Yes (Hospitalization, Other)
  Sender: FDA-Public Use
  Company Number: BE-AUROBINDO-AUR-APL-2018-000003

PATIENT
  Age: 67 Year
  Sex: Male
  Weight: 100 kg

DRUGS (40)
  1. OMEPRAZOLE. [Suspect]
     Active Substance: OMEPRAZOLE
     Indication: PROPHYLAXIS
     Dosage: 20 MG, QD
     Route: 065
     Dates: start: 20150530, end: 20160112
  2. NOVOLIN [Concomitant]
     Active Substance: INSULIN HUMAN
     Dosage: 30 UNITS, UNKNOWN FREQ. ()
     Route: 065
  3. NOVOLIN [Concomitant]
     Active Substance: INSULIN HUMAN
     Dosage: ()
  4. L-THYROXINE                        /00068001/ [Concomitant]
     Active Substance: LEVOTHYROXINE
     Indication: HYPOTHYROIDISM
     Dosage: 100 UG, QD
     Route: 016
     Dates: start: 20090731
  5. OMEPRAZOLE MYLAN                   /00661201/ [Suspect]
     Active Substance: OMEPRAZOLE
     Indication: PROPHYLAXIS
     Dosage: 20 MG, QD
     Route: 016
     Dates: start: 20150530, end: 20160112
  6. METHYLPREDNISOLONE. [Suspect]
     Active Substance: METHYLPREDNISOLONE
     Dosage: UNK ()
     Route: 065
  7. INEGY [Suspect]
     Active Substance: EZETIMIBE\SIMVASTATIN
     Indication: HYPERCHOLESTEROLAEMIA
     Dosage: 10 MG, QD
     Route: 065
     Dates: start: 20150602, end: 20160204
  8. NOVOMIX [Concomitant]
     Active Substance: INSULIN ASPART
     Dosage: 36 UNITS, UNKNOWN FREQ. ()
     Route: 065
  9. ENALAPRIL [Suspect]
     Active Substance: ENALAPRIL
     Indication: HYPERTENSION
     Dosage: 5 MG, QD
     Route: 065
     Dates: start: 20150818, end: 20160112
  10. METHYLPREDNISOLONE. [Suspect]
     Active Substance: METHYLPREDNISOLONE
     Dosage: 8 MG, QD
     Route: 065
  11. TACROLIMUS. [Suspect]
     Active Substance: TACROLIMUS
     Indication: RENAL TRANSPLANT
     Dosage: 3 MG, BID
     Route: 065
     Dates: start: 20151231, end: 20160221
  12. NOVOMIX [Concomitant]
     Active Substance: INSULIN ASPART
     Route: 065
  13. SOLU-MEDROL [Suspect]
     Active Substance: METHYLPREDNISOLONE SODIUM SUCCINATE
     Indication: RENAL TRANSPLANT
     Dosage: ()
     Route: 065
  14. METHYLPREDNISOLONE. [Suspect]
     Active Substance: METHYLPREDNISOLONE
     Dosage: UNK, UNKNOWN FREQ. ()
     Route: 065
  15. METHYLPREDNISOLONE. [Suspect]
     Active Substance: METHYLPREDNISOLONE
     Route: 065
  16. METHYLPREDNISOLONE. [Suspect]
     Active Substance: METHYLPREDNISOLONE
     Dosage: UNK ()
     Route: 065
  17. NOVOMIX [Concomitant]
     Active Substance: INSULIN ASPART
     Indication: DIABETES MELLITUS
     Dosage: 36 U, UNK
     Route: 065
     Dates: start: 20060101
  18. NOVOLIN [Concomitant]
     Active Substance: INSULIN HUMAN
     Indication: DIABETES MELLITUS
     Dosage: 30 U, UNK
     Route: 065
     Dates: start: 20060101
  19. METHYLPREDNISOLONE. [Suspect]
     Active Substance: METHYLPREDNISOLONE
     Dosage: 8 MG, QD
     Route: 065
  20. MEDROL [Suspect]
     Active Substance: METHYLPREDNISOLONE
     Indication: RENAL TRANSPLANT
     Dosage: 8 MILLIGRAM, DAILY
     Route: 016
     Dates: start: 20150519
  21. NOVOMIX [Concomitant]
     Active Substance: INSULIN ASPART
     Dosage: 36 UNITS, UNKNOWN FREQ. ()
     Route: 065
  22. NOVOLIN [Concomitant]
     Active Substance: INSULIN HUMAN
     Dosage: 30 UNITS, UNKNOWN FREQ. ()
     Route: 065
  23. NOVOLIN [Concomitant]
     Active Substance: INSULIN HUMAN
     Dosage: 30 U, UNK
     Route: 065
  24. NOVOLIN [Concomitant]
     Active Substance: INSULIN HUMAN
     Route: 065
  25. SOLU-MEDROL [Suspect]
     Active Substance: METHYLPREDNISOLONE SODIUM SUCCINATE
     Dosage: UNK ()
     Route: 065
  26. CELLCEPT [Suspect]
     Active Substance: MYCOPHENOLATE MOFETIL\MYCOPHENOLATE MOFETIL HYDROCHLORIDE
     Indication: RENAL TRANSPLANT
     Dosage: 500 MG, BID
     Route: 048
     Dates: start: 20150520, end: 20151117
  27. METHYLPREDNISOLONE. [Suspect]
     Active Substance: METHYLPREDNISOLONE
     Route: 065
  28. NOVOMIX [Concomitant]
     Active Substance: INSULIN ASPART
     Dosage: 36 U, UNK
     Route: 065
  29. NOVOMIX [Concomitant]
     Active Substance: INSULIN ASPART
     Route: 065
  30. METHYLPREDNISOLONE. [Suspect]
     Active Substance: METHYLPREDNISOLONE
     Route: 065
  31. METHYLPREDNISOLONE. [Suspect]
     Active Substance: METHYLPREDNISOLONE
     Route: 065
  32. PROGRAFT [Suspect]
     Active Substance: TACROLIMUS
     Indication: RENAL TRANSPLANT
     Dosage: 3.5 MILLIGRAM, ONCE A DAY
     Route: 065
     Dates: start: 20150520, end: 20151117
  33. ZINNAT                             /00454602/ [Suspect]
     Active Substance: CEFUROXIME SODIUM
     Indication: INFECTION
     Dosage: UNK
     Route: 065
     Dates: start: 20160119, end: 20160120
  34. NOVOMIX [Concomitant]
     Active Substance: INSULIN ASPART
     Dosage: 36 U, UNK
     Route: 065
  35. METHYLPREDNISOLONE. [Suspect]
     Active Substance: METHYLPREDNISOLONE
     Indication: RENAL TRANSPLANT
     Dosage: 4 MG, QD
     Route: 065
     Dates: start: 20150519
  36. TACROLIMUS. [Suspect]
     Active Substance: TACROLIMUS
     Dosage: 7 MILLIGRAM, DAILY
     Route: 065
     Dates: start: 20150520, end: 20151117
  37. NOVOLIN [Concomitant]
     Active Substance: INSULIN HUMAN
     Dosage: 30 U, UNK
     Route: 065
  38. NEORAL [Concomitant]
     Active Substance: CYCLOSPORINE
     Indication: RENAL TRANSPLANT
     Dosage: 100 MG, BID
     Route: 065
     Dates: start: 20160227
  39. INSULIN ASPART [Concomitant]
     Active Substance: INSULIN ASPART
     Indication: PRODUCT USED FOR UNKNOWN INDICATION
     Route: 065
     Dates: start: 20060101
  40. SODIUM HYDROGEN CARBONATE [Concomitant]
     Active Substance: SODIUM BICARBONATE
     Indication: ACIDOSIS
     Dosage: 6 MILLIGRAM, ONCE A DAY
     Route: 065
     Dates: start: 20150602

REACTIONS (5)
  - Lymphangitis [Not Recovered/Not Resolved]
  - Necrosis [Recovered/Resolved]
  - Neutropenia [Recovered/Resolved]
  - Osteitis [Recovered/Resolved]
  - Bronchopneumopathy [Recovered/Resolved]

NARRATIVE: CASE EVENT DATE: 20151103
